FAERS Safety Report 8710358 (Version 2)
Quarter: 2013Q4

REPORT INFORMATION
  Report Type: Report from Study
  Country: US (occurrence: US)
  Receive Date: 20120807
  Receipt Date: 20131101
  Transmission Date: 20140711
  Serious: No
  Sender: FDA-Public Use
  Company Number: US-009507513-1207USA004014

PATIENT
  Sex: Female
  Weight: 54.42 kg

DRUGS (7)
  1. VICTRELIS [Suspect]
     Dosage: 4 DF, TID
     Route: 048
  2. PEGASYS [Suspect]
  3. RIBAPAK [Suspect]
     Dosage: 800 UNK, QD
  4. NASACORT AQ [Concomitant]
     Dosage: 55 MICROGRAM, UNK
  5. ALLEGRA [Concomitant]
     Dosage: 30 MG, UNK
  6. SPRINTEC [Concomitant]
     Dosage: 28 TAB 28 DAYS
  7. TYLENOL [Concomitant]
     Dosage: 650 MG, Q8H

REACTIONS (2)
  - Tongue disorder [Unknown]
  - Throat lesion [Unknown]
